FAERS Safety Report 4776623-7 (Version None)
Quarter: 2005Q3

REPORT INFORMATION
  Report Type: 
  Country: None (occurrence: None)
  Receive Date: 20050921
  Receipt Date: 20050908
  Transmission Date: 20060218
  Serious: Yes (Other)
  Sender: FDA-Public Use
  Company Number: 2005119194

PATIENT
  Sex: Male
  Weight: 83.9154 kg

DRUGS (3)
  1. VIAGRA [Suspect]
     Indication: ERECTILE DYSFUNCTION
     Dosage: 25 MG
  2. LEVITRA [Suspect]
     Indication: ERECTILE DYSFUNCTION
     Dates: start: 20050201, end: 20050823
  3. ATACAND [Concomitant]

REACTIONS (7)
  - CYANOPSIA [None]
  - FLUSHING [None]
  - HOT FLUSH [None]
  - MIGRAINE [None]
  - PHOTOPSIA [None]
  - TRIGGER FINGER [None]
  - VISION BLURRED [None]
